FAERS Safety Report 12271827 (Version 2)
Quarter: 2016Q3

REPORT INFORMATION
  Report Type: Spontaneous
  Country: US (occurrence: US)
  Receive Date: 20160415
  Receipt Date: 20160713
  Transmission Date: 20161109
  Serious: Yes (Hospitalization)
  Sender: FDA-Public Use
  Company Number: US-NOVOPROD-483312

PATIENT
  Age: 63 Year
  Sex: Female

DRUGS (12)
  1. SAXENDA [Suspect]
     Active Substance: LIRAGLUTIDE
     Dosage: 1.2 MG, QD
     Route: 058
     Dates: start: 20151201, end: 20151221
  2. SAXENDA [Suspect]
     Active Substance: LIRAGLUTIDE
     Dosage: 1.8 MG, UNK
     Dates: start: 20160117, end: 20160124
  3. SAXENDA [Suspect]
     Active Substance: LIRAGLUTIDE
     Dosage: 2.4 MG, UNK
     Route: 058
     Dates: start: 20160108, end: 20160114
  4. SAXENDA [Suspect]
     Active Substance: LIRAGLUTIDE
     Dosage: 1.2 MG, EVERY 36 HOURS X 8
     Route: 058
     Dates: start: 20151123, end: 20151130
  5. SAXENDA [Suspect]
     Active Substance: LIRAGLUTIDE
     Dosage: 1.8 MG, UNK
     Dates: start: 20160131, end: 20160217
  6. SAXENDA [Suspect]
     Active Substance: LIRAGLUTIDE
     Dosage: 0.6 MG, QD X 4 DAYS
     Route: 058
     Dates: start: 20151120, end: 20151122
  7. SAXENDA [Suspect]
     Active Substance: LIRAGLUTIDE
     Dosage: 1.2 MG, UNK
     Dates: start: 20160129, end: 20160130
  8. SAXENDA [Suspect]
     Active Substance: LIRAGLUTIDE
     Dosage: 1.8 MG, QD
     Route: 058
     Dates: start: 20151222, end: 20160107
  9. SAXENDA [Suspect]
     Active Substance: LIRAGLUTIDE
     Dosage: 2.4MG ALTERNATING WITH 1.8MG AND THEN 2.4MG
     Dates: start: 20160218, end: 20160224
  10. SAXENDA [Suspect]
     Active Substance: LIRAGLUTIDE
     Indication: WEIGHT DECREASED
     Dosage: 0.6 MG, EVERY 36 HOURS X 3
     Route: 058
     Dates: start: 20151117, end: 20151119
  11. SAXENDA [Suspect]
     Active Substance: LIRAGLUTIDE
     Dosage: 2.4 MG, UNK
     Dates: start: 20160125, end: 20160125
  12. SAXENDA [Suspect]
     Active Substance: LIRAGLUTIDE
     Dosage: 0.6 MG, UNK
     Dates: start: 20160128, end: 20160128

REACTIONS (4)
  - Cholelithiasis [Recovered/Resolved]
  - Off label use [Recovered/Resolved]
  - Cholecystitis [Unknown]
  - Constipation [Recovered/Resolved]

NARRATIVE: CASE EVENT DATE: 20151117
